FAERS Safety Report 9352796 (Version 1)
Quarter: 2013Q2

REPORT INFORMATION
  Report Type: Spontaneous
  Country: US (occurrence: None)
  Receive Date: 20130614
  Receipt Date: 20130614
  Transmission Date: 20140414
  Serious: Yes (Life-Threatening, Hospitalization)
  Sender: FDA-Public Use
  Company Number: None

PATIENT
  Age: 56 Year
  Sex: Female
  Weight: 60 kg

DRUGS (6)
  1. CLOZAPINE [Suspect]
     Indication: SCHIZOAFFECTIVE DISORDER
     Dosage: 400 MG DAILY PO?NEW START AFTER INTERRUPT
     Route: 048
  2. ACETAMINOPHEN [Concomitant]
  3. HALOPERIDOL [Concomitant]
  4. LEVOTHYROXINE [Concomitant]
  5. VALPROIC ACID [Concomitant]
  6. DOCUSATE [Concomitant]

REACTIONS (2)
  - Mental status changes [None]
  - Neuroleptic malignant syndrome [None]
